FAERS Safety Report 21985288 (Version 1)
Quarter: 2023Q1

REPORT INFORMATION
  Report Type: Spontaneous
  Country: US (occurrence: US)
  Receive Date: 20230213
  Receipt Date: 20230213
  Transmission Date: 20230418
  Serious: No
  Sender: FDA-Public Use
  Company Number: US-BRISTOL-MYERS SQUIBB COMPANY-2023-020418

PATIENT
  Age: 88 Year
  Sex: Female

DRUGS (1)
  1. LENALIDOMIDE [Suspect]
     Active Substance: LENALIDOMIDE
     Indication: Plasma cell myeloma
     Dosage: TAKE 1 CAPSULE (10 MG) BY MOUTH WHOLE WITH WATER AT THE SAME TIME DAILY ON DAYS 1-14 OUT OF 21 DAY C
     Route: 048
     Dates: start: 20230113

REACTIONS (2)
  - Gastric disorder [Not Recovered/Not Resolved]
  - Off label use [Unknown]
